FAERS Safety Report 25927943 (Version 1)
Quarter: 2025Q4

REPORT INFORMATION
  Report Type: Spontaneous
  Country: JP (occurrence: JP)
  Receive Date: 20251016
  Receipt Date: 20251016
  Transmission Date: 20260117
  Serious: Yes (Death, Other)
  Sender: RECORDATI
  Company Number: JP-ORPHANEU-2025007251

PATIENT
  Age: 10 Decade

DRUGS (1)
  1. ENJAYMO [Suspect]
     Active Substance: SUTIMLIMAB-JOME
     Indication: Product used for unknown indication

REACTIONS (1)
  - Pneumonia [Fatal]
